FAERS Safety Report 7076497-8 (Version None)
Quarter: 2010Q4

REPORT INFORMATION
  Report Type: 
  Country: None (occurrence: None)
  Receive Date: 20101029
  Receipt Date: 20101029
  Transmission Date: 20110411
  Serious: Yes (Other)
  Sender: FDA-Public Use
  Company Number: None

PATIENT
  Age: 17 Year
  Sex: Female
  Weight: 112.9457 kg

DRUGS (10)
  1. INTUNIV [Suspect]
     Dosage: PO
     Route: 048
     Dates: start: 20100219, end: 20100524
  2. PULMICORT INHALERS [Concomitant]
  3. ALBUTEROL INHALERS [Concomitant]
  4. ZOLOFT [Concomitant]
  5. CLONIDINE [Concomitant]
  6. VYVANSE [Concomitant]
  7. CONCERTA [Concomitant]
  8. ALLEGRA [Concomitant]
  9. SINGULAIR [Concomitant]
  10. OMEPRAZOLE [Concomitant]

REACTIONS (1)
  - COMPULSIVE HOARDING [None]
